FAERS Safety Report 18161488 (Version 1)
Quarter: 2020Q3

REPORT INFORMATION
  Report Type: Spontaneous
  Country: US (occurrence: US)
  Receive Date: 20200817
  Receipt Date: 20200817
  Transmission Date: 20201103
  Serious: Yes (Life-Threatening)
  Sender: FDA-Public Use
  Company Number: None

PATIENT
  Age: 47 Year
  Sex: Male

DRUGS (2)
  1. BUPRENORPHINE NALOXONE TABLET [Suspect]
     Active Substance: BUPRENORPHINE\NALOXONE
     Route: 060
  2. BUPRENORPHINE NALOXONE HCL TABLET [Concomitant]
     Dates: start: 20200729

REACTIONS (2)
  - Vomiting [None]
  - Ulcer [None]
